FAERS Safety Report 16566595 (Version 3)
Quarter: 2019Q3

REPORT INFORMATION
  Report Type: Spontaneous
  Country: JP (occurrence: JP)
  Receive Date: 20190712
  Receipt Date: 20190926
  Transmission Date: 20191004
  Serious: Yes (Life-Threatening, Other)
  Sender: FDA-Public Use
  Company Number: JP-PFIZER INC-2019292205

PATIENT
  Age: 84 Year
  Sex: Male

DRUGS (14)
  1. OXYCONTIN [Interacting]
     Active Substance: OXYCODONE HYDROCHLORIDE
     Dosage: 5 MG, TWICE A DAY
     Route: 048
     Dates: start: 20190325
  2. OXYCONTIN [Interacting]
     Active Substance: OXYCODONE HYDROCHLORIDE
     Dosage: 10 MG, TWICE A DAY
     Route: 048
     Dates: start: 20190415
  3. OXYCONTIN [Interacting]
     Active Substance: OXYCODONE HYDROCHLORIDE
     Dosage: 10 MG, TWICE A DAY
     Route: 048
     Dates: start: 20190517
  4. OXYCONTIN [Interacting]
     Active Substance: OXYCODONE HYDROCHLORIDE
     Dosage: 20 MG, TWICE A DAY
     Route: 048
     Dates: start: 20190531
  5. OXYCONTIN [Interacting]
     Active Substance: OXYCODONE HYDROCHLORIDE
     Dosage: 20 MG, TWICE A DAY
     Route: 048
     Dates: start: 20190614
  6. OXINORM [OXYCODONE HYDROCHLORIDE] [Interacting]
     Active Substance: OXYCODONE HYDROCHLORIDE
     Dosage: 2.5 MG, RESCUE
     Route: 048
     Dates: start: 20190523
  7. OXINORM [OXYCODONE HYDROCHLORIDE] [Interacting]
     Active Substance: OXYCODONE HYDROCHLORIDE
     Dosage: 2.5 MG, DAILY (RESCUE)
     Route: 048
     Dates: start: 20190614
  8. OXINORM [OXYCODONE HYDROCHLORIDE] [Interacting]
     Active Substance: OXYCODONE HYDROCHLORIDE
     Dosage: 5 MG, RESCUE
     Route: 048
     Dates: start: 20190405
  9. OXINORM [OXYCODONE HYDROCHLORIDE] [Interacting]
     Active Substance: OXYCODONE HYDROCHLORIDE
     Dosage: 2.5 MG, RESCUE
     Route: 048
     Dates: start: 20190517
  10. OXYCONTIN [Interacting]
     Active Substance: OXYCODONE HYDROCHLORIDE
     Dosage: 10 MG, TWICE A DAY
     Route: 048
     Dates: start: 20190405
  11. LYRICA [Suspect]
     Active Substance: PREGABALIN
     Dosage: 50 MG, TWICE A DAY
     Route: 048
     Dates: start: 20190614, end: 20190622
  12. OXINORM [OXYCODONE HYDROCHLORIDE] [Interacting]
     Active Substance: OXYCODONE HYDROCHLORIDE
     Dosage: 2.5 MG, RESCUE
     Route: 048
     Dates: start: 20190325
  13. OXYCONTIN [Interacting]
     Active Substance: OXYCODONE HYDROCHLORIDE
     Dosage: 5 MG, TWICE A DAY
     Route: 048
     Dates: start: 20190517
  14. OXINORM [OXYCODONE HYDROCHLORIDE] [Interacting]
     Active Substance: OXYCODONE HYDROCHLORIDE
     Dosage: 2.5 MG, RESCUE
     Route: 048
     Dates: start: 20190531

REACTIONS (4)
  - Restlessness [Recovered/Resolved]
  - Drug interaction [Unknown]
  - Speech disorder [Recovered/Resolved]
  - Abnormal behaviour [Recovered/Resolved]

NARRATIVE: CASE EVENT DATE: 20190622
